FAERS Safety Report 25500395 (Version 2)
Quarter: 2025Q3

REPORT INFORMATION
  Report Type: Spontaneous
  Country: US (occurrence: US)
  Receive Date: 20250701
  Receipt Date: 20250903
  Transmission Date: 20251021
  Serious: Yes (Death, Life-Threatening, Hospitalization, Other)
  Sender: IOVANCE BIOTHERAPEUTICS MANUFACTURING LLC
  Company Number: US-IOVANCE BIOTHERAPEUTICS INC.-IOV2025000050

PATIENT

DRUGS (10)
  1. PROLEUKIN [Suspect]
     Active Substance: ALDESLEUKIN
     Indication: Product used for unknown indication
     Route: 065
  2. PROLEUKIN [Suspect]
     Active Substance: ALDESLEUKIN
     Route: 042
     Dates: start: 20250606
  3. PROLEUKIN [Suspect]
     Active Substance: ALDESLEUKIN
     Route: 065
     Dates: start: 20250606
  4. PROLEUKIN [Suspect]
     Active Substance: ALDESLEUKIN
     Route: 065
     Dates: start: 20250607
  5. AMTAGVI [Suspect]
     Active Substance: LIFILEUCEL
     Indication: Product used for unknown indication
     Route: 065
  6. AMTAGVI [Suspect]
     Active Substance: LIFILEUCEL
     Route: 042
     Dates: start: 20250605
  7. FLUDARABINE [Suspect]
     Active Substance: FLUDARABINE PHOSPHATE
     Indication: Product used for unknown indication
     Route: 042
     Dates: start: 20250530
  8. FLUDARABINE [Suspect]
     Active Substance: FLUDARABINE PHOSPHATE
     Route: 042
     Dates: start: 20250603
  9. CYCLOPHOSPHAMIDE [Suspect]
     Active Substance: CYCLOPHOSPHAMIDE
     Indication: Product used for unknown indication
     Route: 042
     Dates: start: 20250528
  10. CYCLOPHOSPHAMIDE [Suspect]
     Active Substance: CYCLOPHOSPHAMIDE
     Route: 042
     Dates: start: 20250529

REACTIONS (9)
  - Lymphodepletion [Unknown]
  - Seizure [Unknown]
  - Cardiac arrest [Recovered/Resolved]
  - Mental status changes [Not Recovered/Not Resolved]
  - Generalised tonic-clonic seizure [Unknown]
  - Confusional state [Unknown]
  - Encephalopathy [Unknown]
  - Death [Fatal]
  - Atrial fibrillation [Unknown]

NARRATIVE: CASE EVENT DATE: 20250609
